FAERS Safety Report 14975919 (Version 1)
Quarter: 2018Q2

REPORT INFORMATION
  Report Type: Spontaneous
  Country: US (occurrence: US)
  Receive Date: 20180605
  Receipt Date: 20180605
  Transmission Date: 20180711
  Serious: No
  Sender: FDA-Public Use
  Company Number: US-ROCHE-2083447

PATIENT
  Sex: Female
  Weight: 125.3 kg

DRUGS (7)
  1. TRAMADOL. [Concomitant]
     Active Substance: TRAMADOL
     Route: 065
  2. ORENCIA [Concomitant]
     Active Substance: ABATACEPT
  3. LEUCOVORIN. [Concomitant]
     Active Substance: LEUCOVORIN
  4. METHOTREXATE. [Concomitant]
     Active Substance: METHOTREXATE
     Route: 065
  5. MOBIC [Concomitant]
     Active Substance: MELOXICAM
     Route: 065
  6. ACTEMRA [Suspect]
     Active Substance: TOCILIZUMAB
     Indication: RHEUMATOID ARTHRITIS
     Route: 042
  7. REMICADE [Concomitant]
     Active Substance: INFLIXIMAB

REACTIONS (2)
  - Treatment failure [Unknown]
  - Arthritis [Unknown]
